FAERS Safety Report 20164374 (Version 1)
Quarter: 2021Q4

REPORT INFORMATION
  Report Type: Spontaneous
  Country: FR (occurrence: FR)
  Receive Date: 20211209
  Receipt Date: 20211209
  Transmission Date: 20220303
  Serious: Yes (Death)
  Sender: FDA-Public Use
  Company Number: None

PATIENT
  Age: 64 Year
  Sex: Female
  Weight: 98.6 kg

DRUGS (13)
  1. VALIUM [Suspect]
     Active Substance: DIAZEPAM
     Indication: Delirium tremens
     Route: 048
     Dates: start: 20210826, end: 20210901
  2. OCTREOTIDE [Suspect]
     Active Substance: OCTREOTIDE
     Indication: Product used for unknown indication
     Route: 042
     Dates: start: 20210830, end: 20210903
  3. CEFTRIAXONE [Suspect]
     Active Substance: CEFTRIAXONE
     Indication: Urinary tract infection
     Route: 042
     Dates: start: 20210902, end: 20210905
  4. AMOXICILLIN\CLAVULANIC ACID [Suspect]
     Active Substance: AMOXICILLIN\CLAVULANIC ACID
     Indication: Vitamin supplementation
     Dosage: 1DF 3/J
     Route: 042
     Dates: start: 20210827, end: 20210903
  5. FOLIC ACID [Suspect]
     Active Substance: FOLIC ACID
     Indication: Vitamin supplementation
     Route: 048
     Dates: start: 20210831, end: 20210927
  6. NOREPINEPHRINE [Suspect]
     Active Substance: NOREPINEPHRINE
     Indication: Shock
     Route: 042
     Dates: start: 20210830, end: 20210916
  7. PANTOPRAZOLE [Suspect]
     Active Substance: PANTOPRAZOLE
     Indication: Gastric ulcer
     Route: 048
     Dates: start: 20210829, end: 20210922
  8. ACETAMINOPHEN [Suspect]
     Active Substance: ACETAMINOPHEN
     Indication: Pain
     Dosage: 1G 3/J
     Route: 042
     Dates: start: 20210903, end: 20210919
  9. ECONAZOLE [Suspect]
     Active Substance: ECONAZOLE
     Indication: Dermatophytosis
     Dosage: 1%, EMULSION FOR SKIN APPLICATION
     Route: 003
     Dates: start: 20210827, end: 20210906
  10. ESIDREX [Suspect]
     Active Substance: HYDROCHLOROTHIAZIDE
     Indication: Product used for unknown indication
     Route: 048
     Dates: start: 20210827, end: 20210901
  11. KARDEGIC [Suspect]
     Active Substance: ASPIRIN DL-LYSINE
     Indication: Peripheral arterial occlusive disease
     Route: 042
     Dates: start: 20210831, end: 20210922
  12. CIPROFLOXACIN [Suspect]
     Active Substance: CIPROFLOXACIN
     Indication: Urinary tract infection
     Dosage: 400MG 2/J
     Route: 065
     Dates: start: 20210902, end: 20210905
  13. POTASSIUM [Suspect]
     Active Substance: POTASSIUM
     Indication: Hypokalaemia
     Dosage: 6 C.A.S /J
     Route: 048
     Dates: start: 20210902, end: 20210905

REACTIONS (1)
  - Acute generalised exanthematous pustulosis [Fatal]

NARRATIVE: CASE EVENT DATE: 20210904
